FAERS Safety Report 8109378 (Version 3)
Quarter: 2014Q2

REPORT INFORMATION
  Report Type: Spontaneous
  Country: US (occurrence: US)
  Receive Date: 20110826
  Receipt Date: 20140414
  Transmission Date: 20141212
  Serious: Yes (Other)
  Sender: FDA-Public Use
  Company Number: US-BAYER-2011-075076

PATIENT
  Age: 28 Year
  Sex: Female
  Weight: 63.49 kg

DRUGS (2)
  1. OCELLA [Suspect]
     Indication: PREMENSTRUAL SYNDROME
     Dosage: UNK
     Dates: start: 2009
  2. NEXIUM [Concomitant]
     Dosage: 40 MG, UNK

REACTIONS (6)
  - Gallbladder injury [None]
  - Cholecystitis chronic [None]
  - Biliary dyskinesia [None]
  - Injury [None]
  - Pain [None]
  - Off label use [None]
